FAERS Safety Report 8410991-X (Version None)
Quarter: 2012Q2

REPORT INFORMATION
  Report Type: 
  Country: None (occurrence: None)
  Receive Date: 20120605
  Receipt Date: 20120605
  Transmission Date: 20120825
  Serious: Yes (Other)
  Sender: FDA-Public Use
  Company Number: US-JNJFOC-20120106206

PATIENT
  Age: 80 Year
  Sex: Female

DRUGS (2)
  1. REMICADE [Suspect]
     Indication: RHEUMATOID ARTHRITIS
     Dosage: 7 MG/KG
     Route: 042
     Dates: start: 20111020
  2. REMICADE [Suspect]
     Dosage: 7 MG/KG
     Route: 042
     Dates: start: 20021219

REACTIONS (1)
  - LUNG NEOPLASM MALIGNANT [None]
